FAERS Safety Report 4934264-2 (Version None)
Quarter: 2006Q1

REPORT INFORMATION
  Report Type: 
  Country: None (occurrence: None)
  Receive Date: 20060303
  Receipt Date: 20060221
  Transmission Date: 20060701
  Serious: Yes (Hospitalization)
  Sender: FDA-Public Use
  Company Number: VNL_0110_2006

PATIENT
  Sex: Female

DRUGS (2)
  1. APO-GO [Suspect]
     Indication: PARKINSON'S DISEASE
     Dosage: DF SC
     Route: 058
  2. OPIATE ANALGESICS [Concomitant]

REACTIONS (5)
  - DIZZINESS [None]
  - HALLUCINATION [None]
  - HYPOTENSION [None]
  - INCORRECT DOSE ADMINISTERED [None]
  - INFECTION [None]
